FAERS Safety Report 8359245-0 (Version None)
Quarter: 2012Q2

REPORT INFORMATION
  Report Type: 
  Country: None (occurrence: None)
  Receive Date: 20120514
  Receipt Date: 20120514
  Transmission Date: 20120825
  Serious: No
  Sender: FDA-Public Use
  Company Number: None

PATIENT
  Age: 63 Year
  Sex: Female
  Weight: 43.0917 kg

DRUGS (1)
  1. RECLAST [Suspect]
     Indication: OSTEOPOROSIS
     Dosage: ONE YEARLY INFUSION ONCER PER YEAR

REACTIONS (3)
  - BACK PAIN [None]
  - INTERVERTEBRAL DISC DISORDER [None]
  - PAIN IN EXTREMITY [None]
